FAERS Safety Report 10043993 (Version 1)
Quarter: 2014Q1

REPORT INFORMATION
  Report Type: Spontaneous
  Country: US (occurrence: US)
  Receive Date: 20140328
  Receipt Date: 20140328
  Transmission Date: 20141002
  Serious: No
  Sender: FDA-Public Use
  Company Number: US-MYLANLABS-2013S1014401

PATIENT
  Age: 71 Year
  Sex: Female

DRUGS (8)
  1. EMSAM (SELEGILINE TRANSDERMAL SYSTEM) [Suspect]
     Indication: DEPRESSION
     Route: 062
     Dates: start: 20130410
  2. ARIMIDEX [Concomitant]
     Route: 048
  3. TYLENOL [Concomitant]
     Route: 048
  4. LIPITOR [Concomitant]
     Route: 048
  5. ELIQUIS [Concomitant]
     Indication: THROMBOSIS PROPHYLAXIS
  6. TRAZODONE [Concomitant]
     Indication: INSOMNIA
     Route: 048
  7. SYNTHROID [Concomitant]
     Indication: HYPOTHYROIDISM
     Route: 048
  8. ATIVAN [Concomitant]
     Indication: ANXIETY

REACTIONS (1)
  - Application site dermatitis [Not Recovered/Not Resolved]
